FAERS Safety Report 10450141 (Version 2)
Quarter: 2014Q3

REPORT INFORMATION
  Report Type: Spontaneous
  Country: JP (occurrence: JP)
  Receive Date: 20140912
  Receipt Date: 20140924
  Transmission Date: 20150326
  Serious: Yes (Hospitalization, Other)
  Sender: FDA-Public Use
  Company Number: JP-PFIZER INC-2014253847

PATIENT
  Age: 58 Year
  Sex: Female

DRUGS (4)
  1. LYRICA [Suspect]
     Active Substance: PREGABALIN
     Indication: BACK PAIN
     Dosage: 75 MG, 2X/DAY
     Route: 048
     Dates: start: 20140421
  2. MOHRUS [Concomitant]
     Active Substance: KETOPROFEN
     Dosage: UNK
     Dates: start: 201405
  3. LOXONIN [Concomitant]
     Active Substance: LOXOPROFEN SODIUM
     Dosage: UNK
     Route: 048
     Dates: start: 201404
  4. NEUROTROPIN [Concomitant]
     Active Substance: NEUROTROPIN
     Indication: SPINAL OSTEOARTHRITIS
     Dosage: 2 DF, 2X/DAY
     Route: 048

REACTIONS (1)
  - Ileus [Unknown]

NARRATIVE: CASE EVENT DATE: 20140502
